FAERS Safety Report 4797563-3 (Version None)
Quarter: 2005Q3

REPORT INFORMATION
  Report Type: 
  Country: None (occurrence: None)
  Receive Date: 20050929
  Receipt Date: 20050711
  Transmission Date: 20060218
  Serious: No
  Sender: FDA-Public Use
  Company Number: 05P-163-0305389-00

PATIENT
  Age: 75 Year
  Sex: Female

DRUGS (11)
  1. HUMIRA [Suspect]
     Indication: RHEUMATOID ARTHRITIS
     Dosage: 40 MG, 1 IN 2 WK, SUBCUTANEOUS
     Route: 058
     Dates: start: 20050614
  2. ZAFIRLUKAST [Concomitant]
  3. RISEDRONATE SODIUM [Concomitant]
  4. HYDROXYCHLOROQUINE PHOSPHATE [Concomitant]
  5. DILTIAZEM HYDROCHLORIDE [Concomitant]
  6. FLUTICASONE PROPIONATE [Concomitant]
  7. SALBUTAMOL [Concomitant]
  8. DYAZIDE [Concomitant]
  9. IRON [Concomitant]
  10. CALCIUM GLUCONATE [Concomitant]
  11. VITAMINS [Concomitant]

REACTIONS (1)
  - RASH [None]
